FAERS Safety Report 7289313-6 (Version None)
Quarter: 2011Q1

REPORT INFORMATION
  Report Type: 
  Country: None (occurrence: None)
  Receive Date: 20110211
  Receipt Date: 20110203
  Transmission Date: 20110831
  Serious: Yes (Hospitalization)
  Sender: FDA-Public Use
  Company Number: JP-ABBOTT-09P-087-0559713-00

PATIENT
  Sex: Female
  Weight: 56 kg

DRUGS (10)
  1. POVIDONE IODINE [Concomitant]
     Indication: NASOPHARYNGITIS
  2. PENTASA [Concomitant]
     Indication: CROHN'S DISEASE
     Route: 048
     Dates: start: 20080616, end: 20100729
  3. HUMIRA [Suspect]
     Route: 058
     Dates: start: 20080324, end: 20100730
  4. HUMIRA [Suspect]
     Route: 058
     Dates: start: 20101109, end: 20101109
  5. LOXONIN [Concomitant]
     Indication: ABDOMINAL PAIN
     Route: 048
     Dates: start: 20100603, end: 20100730
  6. HUMIRA [Suspect]
     Indication: CROHN'S DISEASE
     Route: 058
     Dates: start: 20070501, end: 20080307
  7. FAMOTIDINE [Concomitant]
     Indication: GASTRITIS
     Route: 048
     Dates: start: 20080404, end: 20100729
  8. ELENTAL [Concomitant]
     Indication: CROHN'S DISEASE
     Route: 048
     Dates: start: 20070208, end: 20100729
  9. MIYA BM [Concomitant]
     Indication: DISBACTERIOSIS
     Route: 048
     Dates: start: 20070514, end: 20100729
  10. POVIDONE IODINE [Concomitant]
     Indication: PROPHYLAXIS
     Route: 048
     Dates: start: 20070502

REACTIONS (4)
  - ILEUS [None]
  - CROHN'S DISEASE [None]
  - PERITONITIS [None]
  - INTESTINAL PERFORATION [None]
